FAERS Safety Report 11695199 (Version 1)
Quarter: 2015Q4

REPORT INFORMATION
  Report Type: Spontaneous
  Country: JP (occurrence: JP)
  Receive Date: 20151103
  Receipt Date: 20151103
  Transmission Date: 20160304
  Serious: Yes (Hospitalization, Other)
  Sender: FDA-Public Use
  Company Number: PHJP1992JP000530

PATIENT
  Sex: Female

DRUGS (2)
  1. VOLTAREN [Suspect]
     Active Substance: DICLOFENAC SODIUM
     Dosage: UNK UKN, UNK
     Route: 048
     Dates: start: 19900211
  2. VOLTAREN [Suspect]
     Active Substance: DICLOFENAC SODIUM
     Indication: PRODUCT USED FOR UNKNOWN INDICATION
     Dosage: UNK UKN, UNK
     Route: 048
     Dates: start: 198901, end: 198901

REACTIONS (3)
  - Loss of consciousness [Unknown]
  - Asthma [Unknown]
  - Aspirin-exacerbated respiratory disease [Recovered/Resolved]

NARRATIVE: CASE EVENT DATE: 199001
